FAERS Safety Report 6710137-X (Version None)
Quarter: 2010Q2

REPORT INFORMATION
  Report Type: 
  Country: None (occurrence: None)
  Receive Date: 20100504
  Receipt Date: 20100429
  Transmission Date: 20101027
  Serious: Yes (Hospitalization, Other)
  Sender: FDA-Public Use
  Company Number: UA-BRISTOL-MYERS SQUIBB COMPANY-14616007

PATIENT
  Age: 68 Year
  Sex: Male
  Weight: 80 kg

DRUGS (7)
  1. PACLITAXEL [Suspect]
     Indication: NON-SMALL CELL LUNG CANCER
     Dosage: REGIMEN 2: 643MG, CYCLIC EVERY 3 WEEKS, IV 16FEB2009.
     Route: 042
     Dates: start: 20090216, end: 20090330
  2. CARBOPLATIN [Suspect]
     Indication: NON-SMALL CELL LUNG CANCER
     Dosage: CYCLIC
     Route: 042
     Dates: start: 20090216, end: 20090330
  3. ASPARGIN [Concomitant]
     Dates: start: 20090211
  4. BISOPROLOL FUMARATE [Concomitant]
     Dates: start: 20090211
  5. ESSENTIALE [Concomitant]
     Dates: start: 20090210
  6. TRIMETAZIDINE [Concomitant]
     Dates: start: 20090211
  7. LORISTA [Concomitant]
     Dates: start: 20090211

REACTIONS (1)
  - ARTERIAL THROMBOSIS [None]
